FAERS Safety Report 12423471 (Version 1)
Quarter: 2016Q2

REPORT INFORMATION
  Report Type: Spontaneous
  Country: US (occurrence: US)
  Receive Date: 20160601
  Receipt Date: 20160601
  Transmission Date: 20160815
  Serious: No
  Sender: FDA-Public Use
  Company Number: US-NOVEN PHARMACEUTICALS, INC.-US2015000224

PATIENT
  Age: 47 Year
  Sex: Male

DRUGS (2)
  1. DAYTRANA [Suspect]
     Active Substance: METHYLPHENIDATE
     Indication: ATTENTION DEFICIT/HYPERACTIVITY DISORDER
     Dosage: 30 MG, UNK (PATIENT USING 15 MG AND 30 MG DAYTRANA PATCHES SIMULTANEOUSLY)
     Route: 062
  2. DAYTRANA [Suspect]
     Active Substance: METHYLPHENIDATE
     Dosage: 15 MG, (PATIENT USING 15 MG AND 30 MG DAYTRANA PATCHES SIMULTANEOUSLY)15 MG, UNK
     Route: 062

REACTIONS (6)
  - Overdose [Unknown]
  - Wrong technique in product usage process [Unknown]
  - Drug prescribing error [Unknown]
  - No adverse event [Unknown]
  - Product adhesion issue [Unknown]
  - Product quality issue [Unknown]
